FAERS Safety Report 7033352-7 (Version None)
Quarter: 2010Q4

REPORT INFORMATION
  Report Type: 
  Country: None (occurrence: None)
  Receive Date: 20101004
  Receipt Date: 20100929
  Transmission Date: 20110411
  Serious: Yes (Other)
  Sender: FDA-Public Use
  Company Number: A0883938A

PATIENT
  Age: 62 Year
  Sex: Female

DRUGS (1)
  1. UREA PEROXIDE [Suspect]
     Dosage: AURAL
     Route: 048
     Dates: start: 20100928

REACTIONS (2)
  - DEAFNESS [None]
  - EAR CONGESTION [None]
